FAERS Safety Report 9246581 (Version 4)
Quarter: 2013Q4

REPORT INFORMATION
  Report Type: Spontaneous
  Country: JP (occurrence: JP)
  Receive Date: 20130422
  Receipt Date: 20131003
  Transmission Date: 20140711
  Serious: Yes (Other)
  Sender: FDA-Public Use
  Company Number: JP-EISAI INC-E2090-02610-SPO-JP

PATIENT
  Age: 76 Year
  Sex: Female

DRUGS (5)
  1. TRERIEF [Suspect]
     Indication: TREMOR
     Route: 048
     Dates: start: 20121201, end: 20130401
  2. DOPS [Suspect]
     Indication: ORTHOSTATIC HYPOTENSION
     Dosage: 300 MG DAILY
     Route: 048
     Dates: start: 20121203, end: 2013
  3. REQUIP CR [Suspect]
     Indication: PARKINSONISM
     Dosage: UNKNOWN
     Route: 048
     Dates: start: 20121119, end: 2013
  4. REFLEX [Suspect]
     Indication: DEPRESSION
     Route: 048
     Dates: start: 20121126, end: 20130417
  5. NEODOPASTON [Concomitant]
     Indication: PARKINSONISM
     Dosage: 300 MG DAILY
     Route: 048
     Dates: start: 2003

REACTIONS (2)
  - Hypothyroidism [Recovering/Resolving]
  - Myopathy [Not Recovered/Not Resolved]
